FAERS Safety Report 23297657 (Version 2)
Quarter: 2023Q4

REPORT INFORMATION
  Report Type: Spontaneous
  Country: FR (occurrence: None)
  Receive Date: 20231214
  Receipt Date: 20231229
  Transmission Date: 20240110
  Serious: Yes (Hospitalization, Other)
  Sender: FDA-Public Use
  Company Number: 2023A282282

PATIENT
  Age: 15 Day
  Sex: Male
  Weight: 3.8 kg

DRUGS (2)
  1. BEYFORTUS [Suspect]
     Active Substance: NIRSEVIMAB-ALIP
     Dosage: UNK UNKNOWN
     Dates: start: 20231120, end: 20231120
  2. VITAMIN D NOS [Concomitant]
     Active Substance: VITAMIN D NOS
     Dosage: UNK

REACTIONS (4)
  - Respiratory syncytial virus bronchiolitis [Recovered/Resolved]
  - Rhinitis [Unknown]
  - Crepitations [Unknown]
  - Weight decreased [Unknown]

NARRATIVE: CASE EVENT DATE: 20231201
